FAERS Safety Report 5194442-7 (Version None)
Quarter: 2006Q4

REPORT INFORMATION
  Report Type: 
  Country: None (occurrence: None)
  Receive Date: 20061222
  Receipt Date: 20061208
  Transmission Date: 20070319
  Serious: Yes (Other)
  Sender: FDA-Public Use
  Company Number: 2006VX002335

PATIENT
  Age: 70 Year
  Sex: Male

DRUGS (5)
  1. EFUDEX [Suspect]
     Indication: ACTINIC KERATOSIS
     Dosage: TOP
     Route: 061
  2. TRAZODONE HCL [Concomitant]
  3. ATORVASTATIN CALCIUM [Concomitant]
  4. ESOMEPRAZOLE MAGNESIUM [Concomitant]
  5. GABAPENTIN [Concomitant]

REACTIONS (9)
  - ALCOHOL USE [None]
  - CONDITION AGGRAVATED [None]
  - DYSLIPIDAEMIA [None]
  - INSOMNIA [None]
  - PALPITATIONS [None]
  - PERIPHERAL SENSORY NEUROPATHY [None]
  - REFLUX OESOPHAGITIS [None]
  - THERAPEUTIC RESPONSE DECREASED [None]
  - TINNITUS [None]
